FAERS Safety Report 4485263-9 (Version None)
Quarter: 2004Q4

REPORT INFORMATION
  Report Type: 
  Country: None (occurrence: None)
  Receive Date: 20041021
  Receipt Date: 20041021
  Transmission Date: 20050328
  Serious: Yes (Other)
  Sender: FDA-Public Use
  Company Number: None

PATIENT
  Age: 49 Year
  Sex: Female

DRUGS (2)
  1. MOXIFLOXACIN HCL [Suspect]
     Indication: CELLULITIS ORBITAL
     Dosage: 400 MG  DAILY  ORAL
     Route: 048
     Dates: start: 20040810, end: 20040917
  2. CEFTRIAXONE SODIUM [Concomitant]

REACTIONS (1)
  - HEPATITIS [None]
